FAERS Safety Report 8100359-8 (Version None)
Quarter: 2012Q1

REPORT INFORMATION
  Report Type: 
  Country: None (occurrence: None)
  Receive Date: 20120129
  Receipt Date: 20111124
  Transmission Date: 20120608
  Serious: No
  Sender: FDA-Public Use
  Company Number: US-ABBOTT-11P-163-0877943-00

PATIENT
  Age: 59 Year
  Sex: Female

DRUGS (7)
  1. SINGULAIR [Concomitant]
     Indication: SINUS DISORDER
  2. NAPROXEN (ALEVE) [Concomitant]
     Indication: PAIN
  3. BIOTIN [Concomitant]
     Indication: PRODUCT USED FOR UNKNOWN INDICATION
  4. HUMIRA [Suspect]
     Indication: RHEUMATOID ARTHRITIS
     Dates: start: 20100701
  5. FOLIC ACID [Concomitant]
     Indication: PRODUCT USED FOR UNKNOWN INDICATION
  6. METHOTREXATE [Concomitant]
     Indication: PRODUCT USED FOR UNKNOWN INDICATION
     Dosage: 8 TABLETS WEEKLY
  7. STRESSTABS [Concomitant]
     Indication: PRODUCT USED FOR UNKNOWN INDICATION

REACTIONS (5)
  - OROPHARYNGEAL PAIN [None]
  - CHILLS [None]
  - NASOPHARYNGITIS [None]
  - PAIN IN EXTREMITY [None]
  - COUGH [None]
